FAERS Safety Report 4423368-9 (Version None)
Quarter: 2004Q3

REPORT INFORMATION
  Report Type: 
  Country: None (occurrence: None)
  Receive Date: 20040809
  Receipt Date: 20040729
  Transmission Date: 20050211
  Serious: Yes (Hospitalization)
  Sender: FDA-Public Use
  Company Number: 002271

PATIENT
  Age: 20 Year
  Sex: Female
  Weight: 85 kg

DRUGS (2)
  1. NORGESTIMATE AND ETHINYL ESTRADIOL [Suspect]
     Indication: ACNE
     Dates: start: 20040201, end: 20040601
  2. NORGESTIMATE AND ETHINYL ESTRADIOL [Suspect]
     Indication: DYSMENORRHOEA
     Dates: start: 20040201, end: 20040601

REACTIONS (3)
  - CONDITION AGGRAVATED [None]
  - HYPERTENSION [None]
  - SYNCOPE [None]
